FAERS Safety Report 16355504 (Version 1)
Quarter: 2019Q2

REPORT INFORMATION
  Report Type: Spontaneous
  Country: FR (occurrence: FR)
  Receive Date: 20190525
  Receipt Date: 20190525
  Transmission Date: 20190711
  Serious: Yes (Hospitalization)
  Sender: FDA-Public Use
  Company Number: FR-ACCORD-129155

PATIENT
  Age: 49 Year
  Sex: Male
  Weight: 64.4 kg

DRUGS (9)
  1. OLANZAPINE. [Suspect]
     Active Substance: OLANZAPINE
     Dosage: DATE OF LAST ADMINISTRATION 04-MAR-2019
     Route: 048
     Dates: start: 20190304
  2. SKENAN [Suspect]
     Active Substance: MORPHINE SULFATE
     Dosage: DATE OF LAST ADMINISTRATION 04-MAR-2019
     Route: 048
     Dates: start: 20190304
  3. PARKINANE [Suspect]
     Active Substance: TRIHEXYPHENIDYL HYDROCHLORIDE
     Dosage: DATE OF LAST ADMINISTRATION 04-MAR-2019
     Route: 048
     Dates: start: 20190304
  4. PRAZEPAM [Suspect]
     Active Substance: PRAZEPAM
     Dosage: DATE OF LAST ADMINISTRATION 04-MAR-2019
     Route: 048
     Dates: start: 20190304
  5. TERALITHE [Suspect]
     Active Substance: LITHIUM CARBONATE
     Dosage: DATE OF LAST ADMINISTRATION 04-MAR-2019
     Route: 048
     Dates: start: 20190304
  6. ZOPICLONE [Suspect]
     Active Substance: ZOPICLONE
     Dosage: DATE OF LAST ADMINISTRATION 04-MAR-2019
     Route: 048
     Dates: start: 20190304
  7. LOXAPINE. [Suspect]
     Active Substance: LOXAPINE
     Dosage: DATE OF LAST ADMINISTRATION 04-MAR-2019
     Route: 048
     Dates: start: 20190304
  8. ACTISKENAN [Suspect]
     Active Substance: MORPHINE SULFATE
     Dosage: DATE OF LAST ADMINISTRATION 04-MAR-2019
     Route: 048
     Dates: start: 20190304
  9. QUETIAPINE. [Suspect]
     Active Substance: QUETIAPINE
     Dosage: DATE OF LAST ADMINISTRATION 04-MAR-2019
     Route: 048
     Dates: start: 20190304

REACTIONS (2)
  - Toxicity to various agents [Unknown]
  - Confusional state [Recovering/Resolving]

NARRATIVE: CASE EVENT DATE: 20190304
